FAERS Safety Report 14481826 (Version 1)
Quarter: 2018Q1

REPORT INFORMATION
  Report Type: Spontaneous
  Country: GB (occurrence: GB)
  Receive Date: 20180202
  Receipt Date: 20180202
  Transmission Date: 20180509
  Serious: Yes (Hospitalization, Other)
  Sender: FDA-Public Use
  Company Number: GB-ALSI-201800077

PATIENT
  Age: 3 Month
  Sex: Female

DRUGS (1)
  1. 100% OXYGEN [Suspect]
     Active Substance: OXYGEN
     Indication: LUNG DISORDER
     Route: 065

REACTIONS (2)
  - Loss of consciousness [Unknown]
  - Underdose [Unknown]

NARRATIVE: CASE EVENT DATE: 20170801
